FAERS Safety Report 20038297 (Version 2)
Quarter: 2021Q4

REPORT INFORMATION
  Report Type: Spontaneous
  Country: RU (occurrence: RU)
  Receive Date: 20211105
  Receipt Date: 20211111
  Transmission Date: 20220303
  Serious: Yes (Death, Hospitalization, Other)
  Sender: FDA-Public Use
  Company Number: None

PATIENT
  Sex: Female

DRUGS (2)
  1. MEMANTINE [Suspect]
     Active Substance: MEMANTINE
     Indication: Cognitive disorder
     Dosage: 10 MG, QD
     Route: 048
     Dates: start: 20211001, end: 20211011
  2. MEMANTINE HYDROCHLORIDE [Suspect]
     Active Substance: MEMANTINE HYDROCHLORIDE
     Indication: Cognitive disorder
     Dosage: 5 MG

REACTIONS (3)
  - Cardiac arrest [Fatal]
  - COVID-19 [Fatal]
  - Off label use [Fatal]

NARRATIVE: CASE EVENT DATE: 20211011
